FAERS Safety Report 6375731-7 (Version None)
Quarter: 2009Q3

REPORT INFORMATION
  Report Type: 
  Country: None (occurrence: None)
  Receive Date: 20090922
  Receipt Date: 20090922
  Transmission Date: 20100115
  Serious: Yes (Other)
  Sender: FDA-Public Use
  Company Number: None

PATIENT
  Age: 58 Year
  Sex: Male
  Weight: 183.7 kg

DRUGS (4)
  1. ALTEPLASE 100 MG VIAL GENENTECH [Suspect]
     Indication: ISCHAEMIC STROKE
     Dosage: 9 MG ONCE IV BOLUS
     Route: 040
     Dates: start: 20090815, end: 20090815
  2. ALTEPLASE [Suspect]
     Indication: ISCHAEMIC STROKE
     Dosage: 81 MG ONCE IV DRIP
     Route: 041
  3. GEMFIBROZIL [Concomitant]
  4. LISINOPRIL [Concomitant]

REACTIONS (1)
  - DRUG HYPERSENSITIVITY [None]
